FAERS Safety Report 4645059-1 (Version None)
Quarter: 2005Q2

REPORT INFORMATION
  Report Type: 
  Country: None (occurrence: None)
  Receive Date: 20050426
  Receipt Date: 20050420
  Transmission Date: 20051028
  Serious: Yes (Other)
  Sender: FDA-Public Use
  Company Number: DE-ROCHE-402578

PATIENT
  Age: 39 Year
  Sex: Female

DRUGS (1)
  1. XELODA [Suspect]
     Route: 048

REACTIONS (2)
  - COGNITIVE DISORDER [None]
  - SIMPLE PARTIAL SEIZURES [None]
